FAERS Safety Report 19455772 (Version 3)
Quarter: 2021Q3

REPORT INFORMATION
  Report Type: Other
  Country: RO (occurrence: RO)
  Receive Date: 20210624
  Receipt Date: 20210713
  Transmission Date: 20211014
  Serious: Yes (Other)
  Sender: FDA-Public Use
  Company Number: RO-CELLTRION INC.-2021RO008325

PATIENT

DRUGS (10)
  1. VINCRISTINE [Suspect]
     Active Substance: VINCRISTINE
     Indication: WOUND
  2. RITUXIMAB (UNKNOWN) [Suspect]
     Active Substance: RITUXIMAB
     Indication: FOLLICULAR LYMPHOMA
     Dosage: 375 MG/M2
     Route: 065
     Dates: start: 20200428, end: 20200902
  3. CYCLOPHOSPHAMIDE. [Suspect]
     Active Substance: CYCLOPHOSPHAMIDE
     Indication: FOLLICULAR LYMPHOMA
     Dosage: UNK
     Route: 065
     Dates: start: 20200428, end: 20200902
  4. BENDAMUSTINE [Suspect]
     Active Substance: BENDAMUSTINE
     Indication: PRODUCT USED FOR UNKNOWN INDICATION
     Route: 065
  5. PREDNISOLONE. [Suspect]
     Active Substance: PREDNISOLONE
     Indication: FOLLICULAR LYMPHOMA
     Dosage: UNK
     Route: 065
     Dates: start: 20200428, end: 20200902
  6. PREDNISOLONE. [Suspect]
     Active Substance: PREDNISOLONE
     Indication: WOUND
  7. VINCRISTINE [Suspect]
     Active Substance: VINCRISTINE
     Indication: FOLLICULAR LYMPHOMA
     Dosage: UNK
     Route: 065
     Dates: start: 20200428, end: 20200902
  8. RITUXIMAB (UNKNOWN) [Suspect]
     Active Substance: RITUXIMAB
     Indication: WOUND
  9. GAZYVARO [Suspect]
     Active Substance: OBINUTUZUMAB
     Indication: PRODUCT USED FOR UNKNOWN INDICATION
     Route: 042
  10. CYCLOPHOSPHAMIDE. [Suspect]
     Active Substance: CYCLOPHOSPHAMIDE
     Indication: WOUND

REACTIONS (2)
  - Off label use [Unknown]
  - COVID-19 [Unknown]

NARRATIVE: CASE EVENT DATE: 202008
